FAERS Safety Report 8132900-3 (Version None)
Quarter: 2012Q1

REPORT INFORMATION
  Report Type: 
  Country: None (occurrence: None)
  Receive Date: 20120208
  Receipt Date: 20120131
  Transmission Date: 20120608
  Serious: Yes (Other)
  Sender: FDA-Public Use
  Company Number: 1184656

PATIENT
  Age: 11 Year
  Sex: Male

DRUGS (1)
  1. VINCRISTINE SULFATE [Suspect]
     Indication: PRODUCT USED FOR UNKNOWN INDICATION

REACTIONS (9)
  - ACCIDENTAL OVERDOSE [None]
  - HYPERTENSION [None]
  - HYPOTENSION [None]
  - SUBILEUS [None]
  - INAPPROPRIATE ANTIDIURETIC HORMONE SECRETION [None]
  - DEPRESSED LEVEL OF CONSCIOUSNESS [None]
  - LUNG INFILTRATION [None]
  - THROMBOCYTOPENIA [None]
  - PYREXIA [None]
